FAERS Safety Report 4851391-9 (Version None)
Quarter: 2005Q4

REPORT INFORMATION
  Report Type: 
  Country: None (occurrence: None)
  Receive Date: 20051212
  Receipt Date: 20051128
  Transmission Date: 20060501
  Serious: Yes (Other)
  Sender: FDA-Public Use
  Company Number: US-NOVOPROD-248912

PATIENT
  Age: 16 Year
  Sex: Male

DRUGS (1)
  1. NORDITROPIN NORDIFLEX [Suspect]
     Indication: GROWTH HORMONE DEFICIENCY
     Dosage: 0.39 MG/KG/WEEK
     Route: 058
     Dates: end: 20051101

REACTIONS (3)
  - CEREBRAL HAEMANGIOMA [None]
  - CSF PRESSURE INCREASED [None]
  - HEADACHE [None]
